FAERS Safety Report 11486067 (Version 1)
Quarter: 2015Q3

REPORT INFORMATION
  Report Type: Report from Study
  Country: US (occurrence: US)
  Receive Date: 20150910
  Receipt Date: 20150910
  Transmission Date: 20151125
  Serious: Yes (Life-Threatening, Hospitalization)
  Sender: FDA-Public Use
  Company Number: US-PFIZER INC-2015297603

PATIENT
  Age: 48 Year
  Sex: Female
  Weight: 87.75 kg

DRUGS (7)
  1. XANAX XR [Suspect]
     Active Substance: ALPRAZOLAM
     Indication: INSOMNIA
     Dosage: 1 MG, 1X/DAY
     Route: 048
     Dates: start: 20150508
  2. LOPERAMIDE [Concomitant]
     Active Substance: LOPERAMIDE
     Indication: DIARRHOEA
     Dosage: 4 MG, AS REQUIRED
     Route: 048
     Dates: start: 2015
  3. LORAZEPAM. [Concomitant]
     Active Substance: LORAZEPAM
     Indication: INSOMNIA
     Dosage: 1 MG, 1X/DAY
     Route: 048
     Dates: start: 20150305
  4. LOMOTIL + NEOMYCIN [Concomitant]
     Indication: DIARRHOEA
     Dosage: 5 MG, AS REQUIRED
     Route: 048
     Dates: start: 20150520
  5. HYDROCHLOROTHIAZIDE. [Concomitant]
     Active Substance: HYDROCHLOROTHIAZIDE
     Indication: OEDEMA PERIPHERAL
     Dosage: 25 MG, 1X/DAY
     Route: 048
     Dates: start: 201204
  6. CLARYTINE [Concomitant]
     Indication: SEASONAL ALLERGY
     Dosage: 10 MG, 1X/DAY
     Dates: start: 1994
  7. LEVOTHYROXINE. [Concomitant]
     Active Substance: LEVOTHYROXINE
     Indication: HYPOTHYROIDISM
     Dosage: 100 MCG, 1X/DAY
     Route: 048
     Dates: start: 201204

REACTIONS (2)
  - Suicide attempt [Not Recovered/Not Resolved]
  - Intentional overdose [Not Recovered/Not Resolved]

NARRATIVE: CASE EVENT DATE: 20150806
